FAERS Safety Report 19691435 (Version 1)
Quarter: 2021Q3

REPORT INFORMATION
  Report Type: Spontaneous
  Country: US (occurrence: US)
  Receive Date: 20210812
  Receipt Date: 20210812
  Transmission Date: 20211014
  Serious: Yes (Hospitalization, Other)
  Sender: FDA-Public Use
  Company Number: None

PATIENT
  Age: 45 Year
  Sex: Female

DRUGS (2)
  1. XOLAIR [Concomitant]
     Active Substance: OMALIZUMAB
     Dates: start: 20210211, end: 20210809
  2. XOLAIR [Suspect]
     Active Substance: OMALIZUMAB
     Indication: IDIOPATHIC URTICARIA
     Dosage: INJ 2 SYRINGES (30
     Route: 058
     Dates: start: 20210809, end: 20210809

REACTIONS (3)
  - Anaphylactic reaction [None]
  - Anxiety [None]
  - Faeces discoloured [None]

NARRATIVE: CASE EVENT DATE: 20210810
